FAERS Safety Report 20711572 (Version 1)
Quarter: 2022Q2

REPORT INFORMATION
  Report Type: Spontaneous
  Country: US (occurrence: US)
  Receive Date: 20220414
  Receipt Date: 20220414
  Transmission Date: 20220721
  Serious: Yes (Hospitalization)
  Sender: FDA-Public Use
  Company Number: US-CHIASMA-2022CHI00001

PATIENT
  Age: 64 Year
  Sex: Male
  Weight: 111.11 kg

DRUGS (10)
  1. MYCAPSSA [Suspect]
     Active Substance: OCTREOTIDE
     Indication: Product used for unknown indication
     Dosage: 20 MG, 2X/DAY
     Route: 048
     Dates: start: 20210827, end: 20211226
  2. MYCAPSSA [Suspect]
     Active Substance: OCTREOTIDE
     Dosage: 20 MG, 2X/DAY
     Route: 048
     Dates: start: 202112
  3. ELIQUIS [Concomitant]
     Active Substance: APIXABAN
     Indication: Product used for unknown indication
     Route: 065
  4. METOPROLOL [Concomitant]
     Active Substance: METOPROLOL
     Indication: Product used for unknown indication
     Route: 065
  5. AMLODIPINE [Concomitant]
     Active Substance: AMLODIPINE BESYLATE
     Indication: Product used for unknown indication
  6. VALSARTAN [Concomitant]
     Active Substance: VALSARTAN
     Indication: Product used for unknown indication
  7. DIGOXIN [Concomitant]
     Active Substance: DIGOXIN
     Indication: Product used for unknown indication
  8. TRIAMTERENE [Concomitant]
     Active Substance: TRIAMTERENE
     Indication: Product used for unknown indication
  9. HYDROCHLOROTHIAZIDE [Concomitant]
     Active Substance: HYDROCHLOROTHIAZIDE
     Indication: Product used for unknown indication
  10. TESTOSTERONE [Concomitant]
     Active Substance: TESTOSTERONE
     Indication: Product used for unknown indication
     Route: 065

REACTIONS (3)
  - Cholelithiasis [Recovered/Resolved]
  - Infection [Recovered/Resolved]
  - Procedural pain [Not Recovered/Not Resolved]

NARRATIVE: CASE EVENT DATE: 20211201
